FAERS Safety Report 18245696 (Version 1)
Quarter: 2020Q3

REPORT INFORMATION
  Report Type: Spontaneous
  Country: US (occurrence: US)
  Receive Date: 20200909
  Receipt Date: 20200909
  Transmission Date: 20201103
  Serious: No
  Sender: FDA-Public Use
  Company Number: US-BRISTOL-MYERS SQUIBB COMPANY-12632188

PATIENT
  Age: 73 Year
  Sex: Male

DRUGS (7)
  1. AMOXICILLIN + CLAVULANATE [Interacting]
     Active Substance: AMOXICILLIN\CLAVULANATE POTASSIUM
     Indication: CELLULITIS
     Dosage: DOSAGE FORM=875/125 MG, BID
     Route: 065
     Dates: start: 20011206, end: 200112
  2. LISINOPRIL. [Concomitant]
     Active Substance: LISINOPRIL
     Indication: PRODUCT USED FOR UNKNOWN INDICATION
     Dosage: 10 MG, BID
     Route: 065
  3. WARFARIN SODIUM. [Suspect]
     Active Substance: WARFARIN SODIUM
     Indication: ATRIAL FIBRILLATION
     Dosage: 35?40 MG/WK EXCPT WHILE ON DICLOX. OR W/IN 2WKS FOLLOWING DICL TRT, WHEN DOSE INCR TO 50?60 MG/WK
     Route: 048
     Dates: start: 20000309, end: 20030605
  4. DICLOXACILLIN SODIUM. [Interacting]
     Active Substance: DICLOXACILLIN SODIUM
     Indication: CELLULITIS
     Dosage: 3 CRS: 500MG Q6H ON 10/25/01 FOR 10DAYS, 500MG Q6HR ON 1/24/02 FOR 10DAYS,3/28/02 500MGQ6H FOR 30D
     Route: 065
     Dates: start: 20011025, end: 20020328
  5. CIPROFLOXACIN. [Interacting]
     Active Substance: CIPROFLOXACIN
     Indication: CELLULITIS
     Dosage: 500 MG, BID
     Route: 065
     Dates: start: 20011206, end: 200112
  6. DIGOXIN. [Concomitant]
     Active Substance: DIGOXIN
     Indication: PRODUCT USED FOR UNKNOWN INDICATION
     Dosage: 0.13 MICROGRAM, QD
     Route: 065
  7. FUROSEMIDE. [Concomitant]
     Active Substance: FUROSEMIDE
     Indication: PRODUCT USED FOR UNKNOWN INDICATION
     Dosage: 40 MG, QD
     Route: 065

REACTIONS (4)
  - Drug interaction [Recovered/Resolved]
  - International normalised ratio increased [Recovered/Resolved]
  - Drug ineffective [Recovered/Resolved]
  - Anticoagulation drug level below therapeutic [Recovered/Resolved]

NARRATIVE: CASE EVENT DATE: 2001
